FAERS Safety Report 21364017 (Version 1)
Quarter: 2022Q3

REPORT INFORMATION
  Report Type: Spontaneous
  Country: DE (occurrence: DE)
  Receive Date: 20220922
  Receipt Date: 20220922
  Transmission Date: 20221027
  Serious: Yes (Hospitalization)
  Sender: FDA-Public Use
  Company Number: None

PATIENT
  Age: 59 Year
  Sex: Male
  Weight: 75 kg

DRUGS (9)
  1. MINOXIDIL [Suspect]
     Active Substance: MINOXIDIL
     Dosage: 10 MG, 3X/DAY
     Route: 048
  2. MOXONIDINE [Suspect]
     Active Substance: MOXONIDINE
     Dosage: 0.4 MG, 1X/DAY
     Route: 048
  3. BISOPROLOL [Suspect]
     Active Substance: BISOPROLOL
     Dosage: 5 MG, 1X/DAY
     Route: 048
  4. TORSEMIDE [Suspect]
     Active Substance: TORSEMIDE
     Dosage: 100 MG, 1X/DAY
  5. CANDESARTAN [Suspect]
     Active Substance: CANDESARTAN
     Dosage: 16 MG, 2X/DAY
     Route: 048
  6. LEVITRA [Concomitant]
     Active Substance: VARDENAFIL HYDROCHLORIDE
     Dosage: 10 MG, AS NEEDED
  7. SEVELAMER [Concomitant]
     Active Substance: SEVELAMER
     Dosage: 800 MG
  8. CPS [Concomitant]
     Dosage: SUNDAYS, WEEKLY
  9. METAMIZOL [Concomitant]
     Active Substance: METAMIZOLE SODIUM
     Dosage: 20 DROPS, IF NEEDED

REACTIONS (11)
  - Product monitoring error [Unknown]
  - Wrong technique in product usage process [Unknown]
  - Medication error [Unknown]
  - Product prescribing error [Unknown]
  - Product administration error [Unknown]
  - Product dispensing error [Unknown]
  - Headache [Recovering/Resolving]
  - Headache [Recovering/Resolving]
  - Hypertension [Recovering/Resolving]
  - Hypertensive crisis [Recovering/Resolving]
  - Headache [Recovering/Resolving]
